FAERS Safety Report 5485563-X (Version None)
Quarter: 2007Q4

REPORT INFORMATION
  Report Type: 
  Country: None (occurrence: None)
  Receive Date: 20071011
  Receipt Date: 20070926
  Transmission Date: 20080405
  Serious: Yes (Hospitalization)
  Sender: FDA-Public Use
  Company Number: 060008L07JPN

PATIENT
  Age: 24 Year
  Sex: Female

DRUGS (2)
  1. CLOMIPHENE CITRATE [Suspect]
     Indication: OVULATION INDUCTION
  2. MENOTROPINS [Suspect]

REACTIONS (11)
  - ABORTION THREATENED [None]
  - ACUTE ABDOMEN [None]
  - DRUG EXPOSURE BEFORE PREGNANCY [None]
  - GENITAL HAEMORRHAGE [None]
  - INTRA-UTERINE DEATH [None]
  - OVARIAN HYPERSTIMULATION SYNDROME [None]
  - PERITONEAL HAEMORRHAGE [None]
  - PREMATURE BABY [None]
  - PREMATURE RUPTURE OF MEMBRANES [None]
  - RUPTURED ECTOPIC PREGNANCY [None]
  - TWIN PREGNANCY [None]
